FAERS Safety Report 7228998-7 (Version None)
Quarter: 2011Q1

REPORT INFORMATION
  Report Type: 
  Country: None (occurrence: None)
  Receive Date: 20110117
  Receipt Date: 20110104
  Transmission Date: 20110831
  Serious: Yes (Hospitalization, Other)
  Sender: FDA-Public Use
  Company Number: PHHY2011CA00801

PATIENT
  Sex: Female

DRUGS (5)
  1. PULMICORT [Concomitant]
     Dosage: 200 MG, BID
  2. ACLASTA [Suspect]
     Indication: OSTEOPOROSIS
     Dosage: 5 MG,
     Route: 042
     Dates: start: 20090129
  3. NAPROSYN [Concomitant]
     Dosage: 375 MG, BID
  4. TREDA [Concomitant]
     Dosage: 40 MG, QD
  5. ACLASTA [Suspect]
     Dosage: 5 MG
     Route: 042
     Dates: start: 20100128

REACTIONS (2)
  - HIP FRACTURE [None]
  - RADIUS FRACTURE [None]
